FAERS Safety Report 9643709 (Version 1)
Quarter: 2013Q4

REPORT INFORMATION
  Report Type: Spontaneous
  Country: GB (occurrence: GB)
  Receive Date: 20131024
  Receipt Date: 20131024
  Transmission Date: 20140711
  Serious: Yes (Life-Threatening, Hospitalization, Disabling, Other)
  Sender: FDA-Public Use
  Company Number: GB-ACTAVIS-2013-19097

PATIENT
  Sex: Female

DRUGS (2)
  1. NORETHISTERONE [Suspect]
     Indication: MENSTRUAL DISORDER
     Dosage: UNK
     Route: 065
  2. LAMOTRIGINE (UNKNOWN) [Interacting]
     Indication: EPILEPSY
     Dosage: UNK
     Route: 065

REACTIONS (9)
  - Jaundice [Unknown]
  - Liver disorder [Recovered/Resolved]
  - Malaise [Unknown]
  - Pruritus [Unknown]
  - Blood bilirubin increased [Unknown]
  - Nasopharyngitis [Recovered/Resolved]
  - Influenza like illness [Recovered/Resolved]
  - Cholelithiasis [Unknown]
  - Drug interaction [Unknown]
